FAERS Safety Report 20055709 (Version 2)
Quarter: 2022Q1

REPORT INFORMATION
  Report Type: Report from Study
  Country: MX (occurrence: MX)
  Receive Date: 20211110
  Receipt Date: 20220329
  Transmission Date: 20220423
  Serious: Yes (Other)
  Sender: FDA-Public Use
  Company Number: MX-NOVARTISPH-NVSC2021MX255779

PATIENT
  Age: 75 Year
  Sex: Male
  Weight: 78 kg

DRUGS (5)
  1. EXFORGE HCT [Suspect]
     Active Substance: AMLODIPINE BESYLATE\HYDROCHLOROTHIAZIDE\VALSARTAN
     Indication: Hypertension
     Dosage: 1 DOSAGE FORM, BID, (10/320/25 MG) (STARTED APPROXIMATELY 15 YEARS AGO)
     Route: 048
  2. EXFORGE HCT [Suspect]
     Active Substance: AMLODIPINE BESYLATE\HYDROCHLOROTHIAZIDE\VALSARTAN
     Dosage: 1 DOSAGE FORM, QD, (10/320/25 MG)
     Route: 048
  3. EXFORGE HCT [Suspect]
     Active Substance: AMLODIPINE BESYLATE\HYDROCHLOROTHIAZIDE\VALSARTAN
     Dosage: UNK
     Route: 048
     Dates: start: 202107, end: 202109
  4. EXFORGE HCT [Suspect]
     Active Substance: AMLODIPINE BESYLATE\HYDROCHLOROTHIAZIDE\VALSARTAN
     Dosage: 4 DOSAGE FORM, BID, (STRENGTH: 5/160/12.5 MG) (2 TABLETS IN THE MORNING AND TWO IN THE AFTERNOON)
     Route: 048
  5. EXFORGE HCT [Suspect]
     Active Substance: AMLODIPINE BESYLATE\HYDROCHLOROTHIAZIDE\VALSARTAN
     Dosage: 2 DOSAGE FORM, (10/320/25 MG), (DAILY, WHEN NEEDED)
     Route: 065

REACTIONS (7)
  - Diabetes mellitus [Recovering/Resolving]
  - Blood glucose increased [Recovering/Resolving]
  - Blood pressure increased [Unknown]
  - Malaise [Unknown]
  - Product prescribing error [Unknown]
  - Incorrect dose administered [Unknown]
  - Product selection error [Unknown]

NARRATIVE: CASE EVENT DATE: 20210701
